FAERS Safety Report 4596719-2 (Version None)
Quarter: 2005Q1

REPORT INFORMATION
  Report Type: 
  Country: None (occurrence: None)
  Receive Date: 20050302
  Receipt Date: 20050119
  Transmission Date: 20050727
  Serious: Yes (Hospitalization)
  Sender: FDA-Public Use
  Company Number: FR-GLAXOSMITHKLINE-B0365135A

PATIENT
  Age: 75 Year
  Sex: Female

DRUGS (11)
  1. REQUIP [Suspect]
     Indication: PARKINSON'S DISEASE
     Route: 048
     Dates: start: 20040723, end: 20040807
  2. MODOPAR [Concomitant]
     Indication: PARKINSON'S DISEASE
     Route: 048
     Dates: start: 19940101
  3. PROPRANOLOL [Concomitant]
     Route: 048
  4. ZANIDIP [Concomitant]
     Dosage: 10MG PER DAY
     Route: 048
  5. LEVOTHYROX [Concomitant]
     Dosage: 100MCG PER DAY
     Route: 048
  6. PERGOLIDE MESYLATE [Concomitant]
     Route: 048
     Dates: start: 20000101, end: 20040723
  7. LAROXYL [Concomitant]
     Dosage: 30DROP PER DAY
     Route: 048
  8. ASPEGIC 325 [Concomitant]
     Dosage: 100MG PER DAY
     Route: 048
  9. PRAVASTATIN [Concomitant]
     Dosage: 20MG PER DAY
     Route: 048
  10. BETASERC [Concomitant]
     Dosage: 24MG TWICE PER DAY
     Route: 048
  11. PHYSIOTHERAPY [Concomitant]
     Dates: start: 20040101

REACTIONS (8)
  - DIFFICULTY IN WALKING [None]
  - DRUG INEFFECTIVE [None]
  - FEELING HOT AND COLD [None]
  - HEADACHE [None]
  - INSOMNIA [None]
  - PARKINSON'S DISEASE [None]
  - SYNCOPE [None]
  - VERTIGO [None]
